FAERS Safety Report 9555547 (Version 1)
Quarter: 2013Q3

REPORT INFORMATION
  Report Type: Spontaneous
  Country: US (occurrence: None)
  Receive Date: 20130904
  Receipt Date: 20130904
  Transmission Date: 20140515
  Serious: Yes (Hospitalization)
  Sender: FDA-Public Use
  Company Number: A-US2011-58837

PATIENT
  Age: 25 Year
  Sex: Female

DRUGS (5)
  1. VELETRI [Suspect]
     Indication: PULMONARY ARTERIAL HYPERTENSION
     Dosage: 36 NG/KG, PER MIN, INTRAVENOUS
     Dates: start: 20110413
  2. TRACLEER [Suspect]
     Indication: PULMONARY ARTERIAL HYPERTENSION
     Route: 048
     Dates: start: 20091209
  3. ADCIRCA (TADALAFIL) [Concomitant]
  4. COUMADIN (WARFARIN SODIUM) [Concomitant]
  5. OXYGEN (OXYGEN) [Concomitant]

REACTIONS (5)
  - Rash generalised [None]
  - Swelling face [None]
  - Rash [None]
  - Skin disorder [None]
  - Malaise [None]
